FAERS Safety Report 11813808 (Version 1)
Quarter: 2015Q4

REPORT INFORMATION
  Report Type: Spontaneous
  Country: US (occurrence: None)
  Receive Date: 20151208
  Receipt Date: 20151208
  Transmission Date: 20160305
  Serious: Yes (Disabling, Other)
  Sender: FDA-Public Use
  Company Number: None

PATIENT
  Age: 52 Year
  Sex: Female
  Weight: 70.31 kg

DRUGS (2)
  1. VITAMINS-MULTI [Concomitant]
  2. TRAMETINIB TRAMETINIB 2MG/PINNACLE ONCOLOGY [Suspect]
     Active Substance: TRAMETINIB
     Indication: NEOPLASM MALIGNANT
     Route: 048

REACTIONS (2)
  - Pupil fixed [None]
  - Blindness transient [None]

NARRATIVE: CASE EVENT DATE: 20140609
